FAERS Safety Report 5310210-7 (Version None)
Quarter: 2007Q2

REPORT INFORMATION
  Report Type: 
  Country: None (occurrence: None)
  Receive Date: 20070427
  Receipt Date: 20070419
  Transmission Date: 20071010
  Serious: Yes (Other)
  Sender: FDA-Public Use
  Company Number: PHBS2006DK08465

PATIENT
  Age: 6 Year
  Sex: Male

DRUGS (5)
  1. RITALIN UNO [Suspect]
     Indication: ATTENTION DEFICIT/HYPERACTIVITY DISORDER
     Dosage: 30 MG DAILY
     Route: 048
     Dates: start: 20060126
  2. RITALIN [Concomitant]
     Indication: ATTENTION DEFICIT/HYPERACTIVITY DISORDER
     Dosage: 15+15+10 MG DAILY
     Route: 048
  3. RITALIN [Concomitant]
     Dosage: 10 MG, QD
     Route: 048
     Dates: start: 20060126
  4. RITALIN [Concomitant]
     Dosage: 15+15+10 MG DAILY
     Route: 048
     Dates: start: 20060331
  5. RITALIN [Concomitant]
     Dosage: 10+10+10+10 MG DAILY
     Route: 048
     Dates: start: 20060630

REACTIONS (2)
  - DEPRESSION [None]
  - DRUG INEFFECTIVE [None]
